FAERS Safety Report 13395757 (Version 1)
Quarter: 2017Q2

REPORT INFORMATION
  Report Type: Spontaneous
  Country: US (occurrence: US)
  Receive Date: 20170402
  Receipt Date: 20170402
  Transmission Date: 20170830
  Serious: No
  Sender: FDA-Public Use
  Company Number: None

PATIENT
  Age: 23 Year
  Sex: Female
  Weight: 58.5 kg

DRUGS (3)
  1. CAFFEINE FROM SODA [Concomitant]
  2. ZOLOFT [Concomitant]
     Active Substance: SERTRALINE HYDROCHLORIDE
  3. LORAZEPAM. [Suspect]
     Active Substance: LORAZEPAM
     Indication: ANXIETY
     Dosage: ?          QUANTITY:1 TABLET(S);OTHER FREQUENCY:1/2 TABLET AS NEED;?
     Route: 048
     Dates: start: 20170327, end: 20170401

REACTIONS (1)
  - Burning sensation [None]

NARRATIVE: CASE EVENT DATE: 20170401
